FAERS Safety Report 8279909-7 (Version None)
Quarter: 2012Q2

REPORT INFORMATION
  Report Type: 
  Country: None (occurrence: None)
  Receive Date: 20120412
  Receipt Date: 20120409
  Transmission Date: 20120825
  Serious: No
  Sender: FDA-Public Use
  Company Number: US-PFIZER INC-2012088541

PATIENT
  Sex: Female
  Weight: 50.794 kg

DRUGS (6)
  1. COZAAR [Concomitant]
     Dosage: UNK
  2. INSULIN [Concomitant]
     Indication: DIABETES MELLITUS
     Dosage: UNK
  3. CRESTOR [Concomitant]
     Dosage: UNK
  4. BABY ASPRIN [Concomitant]
     Dosage: UNK
  5. IBUPROFEN (ADVIL) [Suspect]
     Indication: PAIN
     Dosage: 200 MG, 1X/DAY
     Route: 048
     Dates: end: 20120406
  6. IBUPROFEN (ADVIL) [Suspect]
     Indication: PAIN IN EXTREMITY

REACTIONS (1)
  - BLOOD GLUCOSE ABNORMAL [None]
